FAERS Safety Report 13894861 (Version 1)
Quarter: 2017Q3

REPORT INFORMATION
  Report Type: Report from Study
  Country: US (occurrence: US)
  Receive Date: 20170823
  Receipt Date: 20170823
  Transmission Date: 20171127
  Serious: Yes (Other)
  Sender: FDA-Public Use
  Company Number: US-BRISTOL-MYERS SQUIBB COMPANY-BMS-2017-014351

PATIENT
  Sex: Male

DRUGS (1)
  1. NIVOLUMAB [Suspect]
     Active Substance: NIVOLUMAB
     Indication: NON-SMALL CELL LUNG CANCER
     Dosage: Q2WK
     Route: 042
     Dates: start: 20161229

REACTIONS (27)
  - Dizziness [Unknown]
  - Insomnia [Unknown]
  - Mood swings [Not Recovered/Not Resolved]
  - Neoplasm [Not Recovered/Not Resolved]
  - Cough [Unknown]
  - Irritability [Unknown]
  - Memory impairment [Unknown]
  - Somnolence [Unknown]
  - Pain [Unknown]
  - Decreased appetite [Unknown]
  - Headache [Recovered/Resolved]
  - Myalgia [Not Recovered/Not Resolved]
  - Dizziness postural [Recovering/Resolving]
  - Skin exfoliation [Not Recovered/Not Resolved]
  - Therapeutic response unexpected [Unknown]
  - Fatigue [Recovered/Resolved]
  - Arthralgia [Not Recovered/Not Resolved]
  - Muscular weakness [Not Recovered/Not Resolved]
  - Speech disorder [Not Recovered/Not Resolved]
  - Dyspnoea [Recovering/Resolving]
  - Nausea [Unknown]
  - Contusion [Unknown]
  - Feeling cold [Unknown]
  - Pruritus [Unknown]
  - Hair growth abnormal [Unknown]
  - Weight decreased [Unknown]
  - Chest pain [Recovering/Resolving]
